FAERS Safety Report 6104957-2 (Version None)
Quarter: 2009Q1

REPORT INFORMATION
  Report Type: 
  Country: None (occurrence: None)
  Receive Date: 20090306
  Receipt Date: 20090226
  Transmission Date: 20090719
  Serious: Yes (Hospitalization, Other)
  Sender: FDA-Public Use
  Company Number: US-AMGEN-QUU302813

PATIENT
  Sex: Male

DRUGS (1)
  1. ENBREL [Suspect]
     Indication: ANKYLOSING SPONDYLITIS
     Route: 058
     Dates: start: 20060901

REACTIONS (11)
  - ANKYLOSING SPONDYLITIS [None]
  - ASTHENIA [None]
  - BLOOD CHOLESTEROL ABNORMAL [None]
  - DEPRESSION [None]
  - DIZZINESS [None]
  - HYPERTENSION [None]
  - NASOPHARYNGITIS [None]
  - PNEUMONIA [None]
  - STRESS [None]
  - TACHYCARDIA [None]
  - THYROID FUNCTION TEST ABNORMAL [None]
